FAERS Safety Report 7533043-X (Version None)
Quarter: 2011Q2

REPORT INFORMATION
  Report Type: 
  Country: None (occurrence: None)
  Receive Date: 20110608
  Receipt Date: 20110526
  Transmission Date: 20111010
  Serious: Yes (Other)
  Sender: FDA-Public Use
  Company Number: US-AMGEN-USASP2011027627

PATIENT
  Age: 62 Year
  Sex: Female

DRUGS (3)
  1. TREXALL [Concomitant]
     Dosage: 1 MG, QWK
     Dates: start: 19960101
  2. ENBREL [Suspect]
     Dosage: 25 MG, 2 TIMES/WK
  3. ENBREL [Suspect]
     Indication: PSORIATIC ARTHROPATHY
     Dosage: 50 MG, 2 TIMES/WK
     Dates: start: 20091201

REACTIONS (10)
  - SUPRAVENTRICULAR TACHYCARDIA [None]
  - COMPLEMENT FACTOR ABNORMAL [None]
  - FATIGUE [None]
  - IMMOBILE [None]
  - GRAVITATIONAL OEDEMA [None]
  - LEFT VENTRICULAR FAILURE [None]
  - DYSPNOEA [None]
  - PSORIATIC ARTHROPATHY [None]
  - THERAPEUTIC RESPONSE DECREASED [None]
  - JOINT EFFUSION [None]
